FAERS Safety Report 5893869-5 (Version None)
Quarter: 2008Q3

REPORT INFORMATION
  Report Type: 
  Country: None (occurrence: None)
  Receive Date: 20080923
  Receipt Date: 20071115
  Transmission Date: 20090109
  Serious: No
  Sender: FDA-Public Use
  Company Number: US-ASTRAZENECA-2007UW26560

PATIENT
  Age: 80 Year
  Sex: Male

DRUGS (2)
  1. SEROQUEL [Suspect]
     Indication: AGITATION
     Route: 048
     Dates: start: 20071001, end: 20071001
  2. SEROQUEL [Suspect]
     Indication: ABNORMAL BEHAVIOUR
     Route: 048
     Dates: start: 20071001, end: 20071001

REACTIONS (2)
  - CONFUSIONAL STATE [None]
  - FALL [None]
